FAERS Safety Report 23544427 (Version 2)
Quarter: 2024Q1

REPORT INFORMATION
  Report Type: Spontaneous
  Country: US (occurrence: US)
  Receive Date: 20240220
  Receipt Date: 20240227
  Transmission Date: 20240410
  Serious: Yes (Other)
  Sender: FDA-Public Use
  Company Number: US-GLENMARK PHARMACEUTICALS-2024GMK088960

PATIENT

DRUGS (1)
  1. SEVELAMER HYDROCHLORIDE [Suspect]
     Active Substance: SEVELAMER HYDROCHLORIDE
     Indication: Product used for unknown indication
     Dosage: 12000 MILLIGRAM, QD
     Route: 065

REACTIONS (4)
  - Melaena [Recovered/Resolved]
  - Gastritis [Unknown]
  - Gastric ulcer [Unknown]
  - Abdominal pain [Unknown]
